FAERS Safety Report 7155846-6 (Version None)
Quarter: 2010Q4

REPORT INFORMATION
  Report Type: 
  Country: None (occurrence: None)
  Receive Date: 20101214
  Receipt Date: 20101203
  Transmission Date: 20110411
  Serious: Yes (Other)
  Sender: FDA-Public Use
  Company Number: US-JNJFOC-20101202928

PATIENT
  Sex: Female
  Weight: 97.52 kg

DRUGS (4)
  1. REMICADE [Suspect]
     Indication: SYSTEMIC LUPUS ERYTHEMATOSUS
     Route: 042
  2. REMICADE [Suspect]
     Indication: OSTEOARTHRITIS
     Route: 042
  3. REMICADE [Suspect]
     Indication: RHEUMATOID ARTHRITIS
     Route: 042
  4. BUTALBITAL ACETAMINOPHEN AND CAFFEINE [Concomitant]
     Indication: MIGRAINE
     Route: 048

REACTIONS (7)
  - AGEUSIA [None]
  - EYE DISORDER [None]
  - EYE SWELLING [None]
  - HYPOAESTHESIA [None]
  - LIP SWELLING [None]
  - OCULAR HYPERAEMIA [None]
  - OEDEMA PERIPHERAL [None]
